FAERS Safety Report 6148077-X (Version None)
Quarter: 2009Q2

REPORT INFORMATION
  Report Type: 
  Country: None (occurrence: None)
  Receive Date: 20090408
  Receipt Date: 20090331
  Transmission Date: 20091009
  Serious: Yes (Other)
  Sender: FDA-Public Use
  Company Number: B0567801A

PATIENT
  Sex: Male
  Weight: 43 kg

DRUGS (1)
  1. MALARONE [Suspect]
     Indication: MALARIA PROPHYLAXIS
     Dosage: 1TAB PER DAY
     Route: 048
     Dates: start: 20090211, end: 20090303

REACTIONS (7)
  - AMNESIA [None]
  - CRYING [None]
  - DIARRHOEA [None]
  - HALLUCINATION [None]
  - NIGHTMARE [None]
  - SLEEP TALKING [None]
  - SOMNAMBULISM [None]
